FAERS Safety Report 7717611-8 (Version None)
Quarter: 2011Q3

REPORT INFORMATION
  Report Type: 
  Country: None (occurrence: None)
  Receive Date: 20110830
  Receipt Date: 20110822
  Transmission Date: 20111222
  Serious: Yes (Death, Hospitalization)
  Sender: FDA-Public Use
  Company Number: US-BRISTOL-MYERS SQUIBB COMPANY-15989627

PATIENT
  Age: 43 Year
  Sex: Female

DRUGS (2)
  1. CISPLATIN [Suspect]
     Route: 042
  2. FLUOROURACIL [Suspect]
     Dosage: 4000MG/M2,INF
     Route: 042

REACTIONS (7)
  - MULTI-ORGAN FAILURE [None]
  - MUCOSAL INFLAMMATION [None]
  - VOMITING [None]
  - NAUSEA [None]
  - CIRCULATORY COLLAPSE [None]
  - OROPHARYNGEAL DISCOMFORT [None]
  - PANCYTOPENIA [None]
